FAERS Safety Report 5600116-8 (Version None)
Quarter: 2008Q1

REPORT INFORMATION
  Report Type: 
  Country: None (occurrence: None)
  Receive Date: 20080123
  Receipt Date: 20080114
  Transmission Date: 20080703
  Serious: Yes (Hospitalization)
  Sender: FDA-Public Use
  Company Number: B0500631A

PATIENT
  Age: 52 Year
  Sex: Female

DRUGS (2)
  1. FLUTICASONE PROPIONATE + SALMETEROL XINAFOATE [Suspect]
     Indication: ASTHMA
     Route: 055
     Dates: start: 20070606, end: 20080110
  2. SOLU-MEDROL [Concomitant]
     Indication: COLITIS
     Route: 042
     Dates: start: 20071202

REACTIONS (3)
  - DIARRHOEA [None]
  - SALMONELLOSIS [None]
  - VOMITING [None]
